FAERS Safety Report 18869649 (Version 2)
Quarter: 2021Q2

REPORT INFORMATION
  Report Type: Report from Study
  Country: BR (occurrence: BR)
  Receive Date: 20210210
  Receipt Date: 20210416
  Transmission Date: 20210717
  Serious: Yes (Hospitalization)
  Sender: FDA-Public Use
  Company Number: BR-BIOGEN-2021BI00976611

PATIENT
  Age: 17 Year
  Sex: Male

DRUGS (4)
  1. AVONEX PEN [Suspect]
     Active Substance: INTERFERON BETA-1A
  2. AVONEX PEN [Suspect]
     Active Substance: INTERFERON BETA-1A
  3. AVONEX PEN [Suspect]
     Active Substance: INTERFERON BETA-1A
  4. AVONEX PEN [Suspect]
     Active Substance: INTERFERON BETA-1A
     Indication: MULTIPLE SCLEROSIS
     Route: 030
     Dates: start: 200909, end: 201004

REACTIONS (5)
  - Multiple sclerosis [Unknown]
  - Multiple sclerosis relapse [Recovered/Resolved]
  - Off label use [Unknown]
  - Treatment failure [Recovered/Resolved]
  - Thermoanaesthesia [Not Recovered/Not Resolved]

NARRATIVE: CASE EVENT DATE: 200909
